FAERS Safety Report 4477734-6 (Version None)
Quarter: 2004Q3

REPORT INFORMATION
  Report Type: 
  Country: None (occurrence: None)
  Receive Date: 20040923
  Receipt Date: 20040804
  Transmission Date: 20050211
  Serious: No
  Sender: FDA-Public Use
  Company Number: USA040874554

PATIENT
  Age: 48 Year
  Sex: Female
  Weight: 42 kg

DRUGS (4)
  1. FORTEO [Suspect]
     Indication: OSTEOPOROSIS
     Dosage: 20 UG/1 DAY
     Dates: start: 20040201
  2. RALOXIFENE HCL [Suspect]
     Indication: OSTEOPOROSIS
     Dates: start: 20030101, end: 20030101
  3. PREDNISONE [Concomitant]
  4. THYROID TAB [Concomitant]

REACTIONS (4)
  - BONE DENSITY DECREASED [None]
  - EXOPHTHALMOS [None]
  - EYE PRURITUS [None]
  - EYE REDNESS [None]
